FAERS Safety Report 12927919 (Version 1)
Quarter: 2016Q4

REPORT INFORMATION
  Report Type: Spontaneous
  Country: None (occurrence: US)
  Receive Date: 20161110
  Receipt Date: 20161110
  Transmission Date: 20170207
  Serious: No
  Sender: FDA-Public Use
  Company Number: None

PATIENT
  Age: 79 Year
  Sex: Female

DRUGS (1)
  1. RALOXIFENE 60MG [Suspect]
     Active Substance: RALOXIFENE
     Route: 048
     Dates: start: 20160904, end: 20160906

REACTIONS (3)
  - Gait disturbance [None]
  - Muscular weakness [None]
  - Gastrooesophageal reflux disease [None]

NARRATIVE: CASE EVENT DATE: 20160906
